FAERS Safety Report 8902732 (Version 1)
Quarter: 2012Q4

REPORT INFORMATION
  Report Type: 
  Country: US (occurrence: US)
  Receive Date: 20121112
  Receipt Date: 20121112
  Transmission Date: 20130627
  Serious: Yes (Other)
  Sender: FDA-Public Use
  Company Number: US-BAYER-2012-116623

PATIENT
  Age: 2 Year
  Sex: Female
  Weight: 10 kg

DRUGS (2)
  1. BAYER GENUINE ASPIRIN ORIGINAL STRENGTH [Suspect]
     Dosage: UNK UNK, ONCE
     Route: 048
     Dates: start: 20121104, end: 20121104
  2. CLARITAN [Concomitant]

REACTIONS (2)
  - Accidental exposure to product by child [Recovered/Resolved]
  - Expired drug administered [None]
